FAERS Safety Report 15745748 (Version 1)
Quarter: 2018Q4

REPORT INFORMATION
  Report Type: Spontaneous
  Country: JP (occurrence: JP)
  Receive Date: 20181220
  Receipt Date: 20181220
  Transmission Date: 20190205
  Serious: Yes (Hospitalization)
  Sender: FDA-Public Use
  Company Number: JP-BRACCO-2018JP06532

PATIENT
  Age: 71 Year
  Sex: Male

DRUGS (2)
  1. IOPAMIRON [Suspect]
     Active Substance: IOPAMIDOL
     Indication: COMPUTERISED TOMOGRAM
     Dosage: UNK, SINGLE
     Route: 042
     Dates: start: 20181205, end: 20181205
  2. IOPAMIRON [Suspect]
     Active Substance: IOPAMIDOL
     Indication: COMPUTERISED TOMOGRAM
     Dosage: UNK UNK, SINGLE
     Route: 042
     Dates: start: 20181004, end: 20181004

REACTIONS (2)
  - Pancreatitis chronic [Recovered/Resolved]
  - Cholecystitis acute [Unknown]

NARRATIVE: CASE EVENT DATE: 20181004
